FAERS Safety Report 25132603 (Version 3)
Quarter: 2025Q3

REPORT INFORMATION
  Report Type: Spontaneous
  Country: IL (occurrence: IL)
  Receive Date: 20250328
  Receipt Date: 20250929
  Transmission Date: 20251020
  Serious: Yes (Life-Threatening, Other)
  Sender: JAZZ
  Company Number: IL-JAZZ PHARMACEUTICALS-2025-IL-004235

PATIENT
  Age: 36 Year
  Sex: Female
  Weight: 90 kg

DRUGS (2)
  1. EPIDIOLEX [Suspect]
     Active Substance: CANNABIDIOL
     Indication: Epilepsy
  2. EPIDIOLEX [Suspect]
     Active Substance: CANNABIDIOL

REACTIONS (3)
  - Epilepsy [Recovered/Resolved]
  - Product deposit [Unknown]
  - Off label use [Unknown]

NARRATIVE: CASE EVENT DATE: 20250213
